FAERS Safety Report 24734497 (Version 1)
Quarter: 2024Q4

REPORT INFORMATION
  Report Type: Spontaneous
  Country: US (occurrence: US)
  Receive Date: 20241214
  Receipt Date: 20241214
  Transmission Date: 20250115
  Serious: Yes (Other)
  Sender: AMGEN
  Company Number: US-AMGEN-USASP2024241677

PATIENT
  Age: 92 Year
  Sex: Female

DRUGS (3)
  1. PROCRIT [Suspect]
     Active Substance: ERYTHROPOIETIN
     Indication: Off label use
     Dosage: 20000 UNIT, Q3WK
     Route: 040
     Dates: start: 20241119
  2. PROCRIT [Suspect]
     Active Substance: ERYTHROPOIETIN
     Indication: Haemoglobin decreased
  3. IRON [Concomitant]
     Active Substance: IRON
     Indication: Haemoglobin decreased
     Dosage: UNK
     Dates: start: 20241119

REACTIONS (2)
  - Renal disorder [Unknown]
  - Off label use [Unknown]

NARRATIVE: CASE EVENT DATE: 20240101
